FAERS Safety Report 21106607 (Version 2)
Quarter: 2022Q3

REPORT INFORMATION
  Report Type: Spontaneous
  Country: CN (occurrence: None)
  Receive Date: 20220720
  Receipt Date: 20220727
  Transmission Date: 20221027
  Serious: Yes (Hospitalization, Other)
  Sender: FDA-Public Use
  Company Number: 2022A255412

PATIENT
  Age: 17564 Day
  Sex: Female
  Weight: 55 kg

DRUGS (2)
  1. OSIMERTINIB MESYLATE [Suspect]
     Active Substance: OSIMERTINIB MESYLATE
     Indication: Chemotherapy
     Route: 048
     Dates: start: 20220611, end: 20220703
  2. SAVOLITINIB [Suspect]
     Active Substance: SAVOLITINIB
     Indication: Chemotherapy
     Route: 048
     Dates: start: 20220603, end: 20220703

REACTIONS (1)
  - Myelosuppression [Recovering/Resolving]

NARRATIVE: CASE EVENT DATE: 20220704
